FAERS Safety Report 24844653 (Version 1)
Quarter: 2025Q1

REPORT INFORMATION
  Report Type: Spontaneous
  Country: FR (occurrence: FR)
  Receive Date: 20250115
  Receipt Date: 20250115
  Transmission Date: 20250408
  Serious: Yes (Other)
  Sender: CIPLA
  Company Number: FR-AFSSAPS-MA2024001844

PATIENT

DRUGS (3)
  1. RIVAROXABAN [Suspect]
     Active Substance: RIVAROXABAN
     Indication: Antiphospholipid syndrome
     Dosage: 20 MILLIGRAM, QD
     Route: 048
     Dates: start: 20240722
  2. TEICOPLANIN [Suspect]
     Active Substance: TEICOPLANIN
     Indication: Arthritis infective
     Dosage: 1 GRAM, BID
     Route: 042
     Dates: start: 20240715
  3. CLINDAMYCIN HYDROCHLORIDE [Suspect]
     Active Substance: CLINDAMYCIN HYDROCHLORIDE
     Indication: Arthritis infective
     Dosage: 600 MILLIGRAM, QID
     Route: 048
     Dates: start: 20240715

REACTIONS (1)
  - Pancytopenia [Unknown]

NARRATIVE: CASE EVENT DATE: 20240729
